FAERS Safety Report 21350432 (Version 1)
Quarter: 2022Q3

REPORT INFORMATION
  Report Type: Spontaneous
  Country: GB (occurrence: GB)
  Receive Date: 20220919
  Receipt Date: 20220919
  Transmission Date: 20221027
  Serious: Yes (Other)
  Sender: FDA-Public Use
  Company Number: None

PATIENT

DRUGS (1)
  1. LORATADINE [Suspect]
     Active Substance: LORATADINE
     Indication: Hypersensitivity
     Route: 065
     Dates: start: 20220901, end: 20220909

REACTIONS (1)
  - Eye pruritus [Recovered/Resolved with Sequelae]

NARRATIVE: CASE EVENT DATE: 20220902
